FAERS Safety Report 19622764 (Version 1)
Quarter: 2021Q3

REPORT INFORMATION
  Report Type: Spontaneous
  Country: DE (occurrence: DE)
  Receive Date: 20210728
  Receipt Date: 20210728
  Transmission Date: 20211014
  Serious: Yes (Other)
  Sender: FDA-Public Use
  Company Number: DE-ACCORD-233294

PATIENT
  Sex: Female
  Weight: 76 kg

DRUGS (6)
  1. LETROZOL ACCORD [Suspect]
     Active Substance: LETROZOLE
     Indication: PRODUCT USED FOR UNKNOWN INDICATION
     Dosage: STRENGTH: 2.5 MG, 1 TABLET PER DAY
     Dates: start: 201507
  2. RAMIPRIL?ISIS [Concomitant]
     Dosage: STRENGTH: 5 MG?2 TABLETS DAILY
     Dates: start: 201307
  3. COLECALCIFEROL ARISTO [Concomitant]
     Dosage: 20 000 I.E.?1 PER WEEK
     Dates: start: 201907
  4. MODERNA COVID?19 [Concomitant]
     Dosage: SECOND DOSE
     Dates: start: 20210425, end: 20210425
  5. VERZENIOS [Suspect]
     Active Substance: ABEMACICLIB
     Indication: PRODUCT USED FOR UNKNOWN INDICATION
     Dosage: STRENGTH: 100 MG, 2 TABLETS DAILY
     Dates: start: 201907
  6. ELIQUIS [Concomitant]
     Active Substance: APIXABAN
     Dosage: STRENGTH: 5 MG?2 TABLETS DAILY
     Dates: start: 202107

REACTIONS (4)
  - Dyspnoea exertional [Not Recovered/Not Resolved]
  - Alopecia [Not Recovered/Not Resolved]
  - Fatigue [Not Recovered/Not Resolved]
  - Vena cava thrombosis [Recovered/Resolved]

NARRATIVE: CASE EVENT DATE: 201507
